FAERS Safety Report 9622394 (Version 2)
Quarter: 2013Q4

REPORT INFORMATION
  Report Type: Spontaneous
  Country: US (occurrence: US)
  Receive Date: 20131015
  Receipt Date: 20131015
  Transmission Date: 20140711
  Serious: No
  Sender: FDA-Public Use
  Company Number: US-PURDUE-USA-2012-0085892

PATIENT
  Sex: Female

DRUGS (2)
  1. BUTRANS [Suspect]
     Indication: ARTHRALGIA
     Dosage: 10 MCG/HR, UNK
     Route: 062
     Dates: start: 201204
  2. BUTRANS [Suspect]
     Indication: ARTHRITIS

REACTIONS (2)
  - Insomnia [Unknown]
  - Pain [Recovering/Resolving]
